FAERS Safety Report 5194612-8 (Version None)
Quarter: 2006Q4

REPORT INFORMATION
  Report Type: 
  Country: None (occurrence: None)
  Receive Date: 20061229
  Receipt Date: 20061221
  Transmission Date: 20070319
  Serious: Yes (Death)
  Sender: FDA-Public Use
  Company Number: JP-JNJFOC-20061203706

PATIENT
  Sex: Female
  Weight: 48.4 kg

DRUGS (8)
  1. LEVOFLOXACIN [Suspect]
     Indication: OTITIS EXTERNA
     Route: 048
     Dates: start: 20061121, end: 20061206
  2. LEVOFLOXACIN [Suspect]
     Route: 048
     Dates: start: 20061121, end: 20061206
  3. LOXOPROFEN [Suspect]
     Indication: PAIN
     Route: 065
     Dates: start: 20061121, end: 20061206
  4. AMOBAN [Suspect]
     Indication: INSOMNIA
     Route: 048
     Dates: start: 20060924, end: 20061206
  5. KETOPROFEN [Suspect]
     Indication: SPINAL COMPRESSION FRACTURE
     Route: 062
     Dates: start: 20061011, end: 20061206
  6. SELTOUCH [Suspect]
     Indication: SPINAL COMPRESSION FRACTURE
     Route: 062
     Dates: start: 20061112, end: 20061206
  7. MYCOSPOR [Concomitant]
     Indication: TINEA PEDIS
     Route: 062
  8. DICLOFENAC SODIUM [Concomitant]
     Indication: SPINAL COMPRESSION FRACTURE
     Route: 054

REACTIONS (4)
  - DISCOMFORT [None]
  - DYSPNOEA [None]
  - MALAISE [None]
  - SUDDEN DEATH [None]
